FAERS Safety Report 16393900 (Version 1)
Quarter: 2019Q3

REPORT INFORMATION
  Report Type: Spontaneous
  Country: US (occurrence: US)
  Receive Date: 20190603
  Receipt Date: 20190603
  Transmission Date: 20191004
  Serious: Yes (Other)
  Sender: FDA-Public Use
  Company Number: None

PATIENT
  Age: 51 Year
  Sex: Female
  Weight: 75.8 kg

DRUGS (2)
  1. GEMZAR [Concomitant]
     Active Substance: GEMCITABINE HYDROCHLORIDE
     Dates: start: 20190228, end: 20190531
  2. CARBOPLATIN. [Suspect]
     Active Substance: CARBOPLATIN
     Indication: OVARIAN CANCER
     Dosage: ?          OTHER FREQUENCY:EVERY 3 WEEKS;?
     Route: 041
     Dates: start: 20190228, end: 20190531

REACTIONS (6)
  - Pruritus [None]
  - Rash erythematous [None]
  - Infusion related reaction [None]
  - Paraesthesia oral [None]
  - Palpitations [None]
  - Pharyngeal paraesthesia [None]

NARRATIVE: CASE EVENT DATE: 20190531
